FAERS Safety Report 4528579-X (Version None)
Quarter: 2004Q4

REPORT INFORMATION
  Report Type: 
  Country: None (occurrence: None)
  Receive Date: 20041216
  Receipt Date: 20041206
  Transmission Date: 20050328
  Serious: Yes (Other)
  Sender: FDA-Public Use
  Company Number: PHEH2004US13178

PATIENT

DRUGS (1)
  1. GLEEVEC [Suspect]

REACTIONS (2)
  - RASH GENERALISED [None]
  - SWOLLEN TONGUE [None]
